FAERS Safety Report 16180578 (Version 2)
Quarter: 2019Q2

REPORT INFORMATION
  Report Type: Spontaneous
  Country: AU (occurrence: AU)
  Receive Date: 20190410
  Receipt Date: 20190517
  Transmission Date: 20190711
  Serious: Yes (Death)
  Sender: FDA-Public Use
  Company Number: AU-ACTELION-A-CH2019-188681

PATIENT
  Age: 64 Year
  Sex: Female

DRUGS (10)
  1. SERTRALINE [Concomitant]
     Active Substance: SERTRALINE HYDROCHLORIDE
     Dosage: 150 MG, QD
  2. FRUSEMIDE [Concomitant]
     Active Substance: FUROSEMIDE
     Dosage: 20 MG, QD
  3. IRON [Concomitant]
     Active Substance: IRON
  4. OLANZAPINE. [Concomitant]
     Active Substance: OLANZAPINE
     Dosage: 5 MG, BID
  5. TADALAFIL. [Concomitant]
     Active Substance: TADALAFIL
     Indication: PULMONARY ARTERIAL HYPERTENSION
     Dosage: 40 MG, OD
     Route: 048
     Dates: start: 20180401, end: 20190327
  6. LITHIUM. [Concomitant]
     Active Substance: LITHIUM
     Dosage: 250 MG, QD
  7. THYROXINE [Concomitant]
     Active Substance: LEVOTHYROXINE
     Dosage: 50 MCG, QD
  8. OPSUMIT [Suspect]
     Active Substance: MACITENTAN
     Indication: PULMONARY ARTERIAL HYPERTENSION
     Dosage: 10 MG, QD
     Route: 048
     Dates: start: 20141210, end: 20190327
  9. LANSOPRAZOLE. [Concomitant]
     Active Substance: LANSOPRAZOLE
     Dosage: 20 MG, QD
  10. SILDENAFIL. [Concomitant]
     Active Substance: SILDENAFIL
     Dosage: UNK
     Dates: start: 20150501, end: 20180401

REACTIONS (9)
  - Condition aggravated [Fatal]
  - Atrial flutter [Fatal]
  - Pneumonia [Fatal]
  - Pulmonary arterial hypertension [Fatal]
  - Disease progression [Fatal]
  - Electrolyte imbalance [Fatal]
  - Cardiac arrest [Fatal]
  - Acute pulmonary oedema [Fatal]
  - Major depression [Fatal]

NARRATIVE: CASE EVENT DATE: 201903
